FAERS Safety Report 6369372-5 (Version None)
Quarter: 2009Q3

REPORT INFORMATION
  Report Type: 
  Country: None (occurrence: None)
  Receive Date: 20090917
  Receipt Date: 20090909
  Transmission Date: 20100115
  Serious: Yes (Disabling)
  Sender: FDA-Public Use
  Company Number: GXBR2009US01571

PATIENT
  Age: 87 Year
  Sex: Female
  Weight: 63.5 kg

DRUGS (10)
  1. ALPRAZOLAM [Suspect]
     Indication: INSOMNIA
     Dosage: 1.0-1.5MG QD, ORAL 0.5 MG, QHS, ORAL
     Route: 048
     Dates: start: 20000101, end: 20090601
  2. TOPROL-XL [Concomitant]
  3. COZAAR [Concomitant]
  4. GLYBURIDE [Concomitant]
  5. FUROSEMIDE [Concomitant]
  6. ASPIRIN [Concomitant]
  7. MAGNESIUM OXIDE (MAGNESIUM OXIDE) [Concomitant]
  8. COQ10 (UBIDECARENONE) [Concomitant]
  9. ZOLOFT (SERTRALINE) (SERTRALINE) [Concomitant]
  10. CITALOPRAM HYDROBROMIDE [Concomitant]

REACTIONS (10)
  - ANGER [None]
  - DRUG INEFFECTIVE [None]
  - INSOMNIA [None]
  - MEMORY IMPAIRMENT [None]
  - MENTAL DISORDER [None]
  - NERVOUSNESS [None]
  - NEUROPATHY PERIPHERAL [None]
  - SUICIDAL IDEATION [None]
  - TREATMENT NONCOMPLIANCE [None]
  - WITHDRAWAL SYNDROME [None]
